FAERS Safety Report 23024016 (Version 1)
Quarter: 2023Q4

REPORT INFORMATION
  Report Type: Spontaneous
  Country: US (occurrence: US)
  Receive Date: 20231003
  Receipt Date: 20231003
  Transmission Date: 20240109
  Serious: No
  Sender: FDA-Public Use
  Company Number: US-drreddys-SPO/USA/23/0175272

PATIENT
  Age: 36 Year

DRUGS (1)
  1. ZENATANE [Suspect]
     Active Substance: ISOTRETINOIN
     Indication: Product used for unknown indication
     Dosage: RMA ISSUE DATES: 20 APRIL 2023 10:49:05 AM, 05 MAY 2023 11:13:21 AM, 7 JUNE 2023 10:48:33 AM, 14 JUL

REACTIONS (3)
  - Acne cystic [Unknown]
  - Condition aggravated [Unknown]
  - Drug ineffective [Unknown]
